FAERS Safety Report 10214651 (Version 2)
Quarter: 2014Q3

REPORT INFORMATION
  Report Type: Spontaneous
  Country: US (occurrence: US)
  Receive Date: 20140603
  Receipt Date: 20140731
  Transmission Date: 20150326
  Serious: Yes (Other)
  Sender: FDA-Public Use
  Company Number: US-BRISTOL-MYERS SQUIBB COMPANY-20884656

PATIENT
  Age: 25 Year
  Sex: Male

DRUGS (5)
  1. WELLBUTRIN [Concomitant]
     Active Substance: BUPROPION HYDROCHLORIDE
  2. HALDOL [Concomitant]
     Active Substance: HALOPERIDOL
  3. ABILIFY MAINTENA [Suspect]
     Active Substance: ARIPIPRAZOLE
     Indication: SCHIZOAFFECTIVE DISORDER
     Dosage: 08-MAY-2014-300MG-IM DEPOT.
     Route: 030
     Dates: start: 20140418
  4. ABILIFY [Suspect]
     Active Substance: ARIPIPRAZOLE
     Indication: SCHIZOAFFECTIVE DISORDER
     Dosage: START WITH 10MG,INCREASED TO 15MG,THEN RESTART WITH 7.5MG
     Dates: start: 201311
  5. DIPHENHYDRAMINE HCL [Concomitant]
     Active Substance: DIPHENHYDRAMINE HYDROCHLORIDE

REACTIONS (6)
  - Schizoaffective disorder [Recovering/Resolving]
  - Off label use [Unknown]
  - Rash [Recovering/Resolving]
  - Local swelling [Recovering/Resolving]
  - Urticaria [Recovering/Resolving]
  - Animal scratch [Recovering/Resolving]
